FAERS Safety Report 4764417-8 (Version None)
Quarter: 2005Q3

REPORT INFORMATION
  Report Type: 
  Country: None (occurrence: None)
  Receive Date: 20050906
  Receipt Date: 20050823
  Transmission Date: 20060218
  Serious: Yes (Hospitalization)
  Sender: FDA-Public Use
  Company Number: HQWYE110625AUG05

PATIENT
  Age: 22 Year
  Sex: Male
  Weight: 68.5 kg

DRUGS (10)
  1. RAPAMUNE [Suspect]
     Indication: PROPHYLAXIS AGAINST TRANSPLANT REJECTION
     Dosage: 9 MG EVERY OTHER DAY ALTERNATING WITH 10 MG ON ALTERNATE DAYS [^OFF STUDY THERAPY^], ORAL
     Route: 048
     Dates: start: 20050214
  2. PREDNISONE [Suspect]
     Indication: PROPHYLAXIS AGAINST TRANSPLANT REJECTION
     Dosage: 10 MG 1X PER 1 DAY, ORAL
     Route: 048
  3. PROGRAF [Suspect]
     Indication: PROPHYLAXIS AGAINST TRANSPLANT REJECTION
     Dosage: 6 MG 2X PER 1 DAY, ORAL
     Route: 048
  4. K-PHOS (POTASSIUM PHOSPHATE MONOBASIC) [Concomitant]
  5. SEPTRA DS [Concomitant]
  6. VALCYTE [Concomitant]
  7. ROCALTROL [Concomitant]
  8. RANIDITINE (RANIDITINE) [Concomitant]
  9. CLOTRIMAZOLE (CLOTRIMAZOLE [Concomitant]
  10. ZENAPAX [Concomitant]

REACTIONS (1)
  - KIDNEY TRANSPLANT REJECTION [None]
